FAERS Safety Report 5377865-2 (Version None)
Quarter: 2007Q2

REPORT INFORMATION
  Report Type: 
  Country: None (occurrence: None)
  Receive Date: 20070629
  Receipt Date: 20070614
  Transmission Date: 20071010
  Serious: Yes (Other)
  Sender: FDA-Public Use
  Company Number: 2007SP012349

PATIENT
  Age: 4 Year
  Sex: Female
  Weight: 19.9583 kg

DRUGS (2)
  1. CHILDREN'S CLARITIN [Suspect]
     Indication: EYE PRURITUS
     Dosage: ; PO
     Route: 048
     Dates: start: 20070611, end: 20070613
  2. CHILDREN'S CLARITIN [Suspect]
     Indication: RHINORRHOEA
     Dosage: ; PO
     Route: 048
     Dates: start: 20070611, end: 20070613

REACTIONS (1)
  - HAEMATOCHEZIA [None]
